FAERS Safety Report 11772253 (Version 2)
Quarter: 2020Q2

REPORT INFORMATION
  Report Type: Spontaneous
  Country: US (occurrence: US)
  Receive Date: 20151124
  Receipt Date: 20200524
  Transmission Date: 20200713
  Serious: Yes (Other)
  Sender: FDA-Public Use
  Company Number: US-TEVA-595691USA

PATIENT
  Sex: Male
  Weight: 97.61 kg

DRUGS (1)
  1. AZITHROMYCIN ANHYDROUS. [Suspect]
     Active Substance: AZITHROMYCIN ANHYDROUS
     Indication: RHINORRHOEA
     Route: 065
     Dates: start: 2015

REACTIONS (5)
  - Dizziness [Unknown]
  - Angina pectoris [Unknown]
  - Drug ineffective [Unknown]
  - Pruritus [Unknown]
  - Rhinorrhoea [Not Recovered/Not Resolved]
